FAERS Safety Report 22041160 (Version 1)
Quarter: 2023Q1

REPORT INFORMATION
  Report Type: Spontaneous
  Country: US (occurrence: US)
  Receive Date: 20230227
  Receipt Date: 20230227
  Transmission Date: 20230418
  Serious: Yes (Other)
  Sender: FDA-Public Use
  Company Number: US-CHEMOCENTRYX, INC.-2023USCCXI0780

PATIENT

DRUGS (1)
  1. TAVNEOS [Suspect]
     Active Substance: AVACOPAN
     Indication: Granulomatosis with polyangiitis
     Dosage: 30 MG, 2X/DAY
     Route: 048
     Dates: start: 20221227

REACTIONS (5)
  - Chemotherapy [Not Recovered/Not Resolved]
  - Product dose omission issue [Unknown]
  - Rash [Not Recovered/Not Resolved]
  - Infection [Not Recovered/Not Resolved]
  - Unevaluable event [Not Recovered/Not Resolved]
